FAERS Safety Report 7916758 (Version 3)
Quarter: 2012Q4

REPORT INFORMATION
  Report Type: 
  Country: US (occurrence: US)
  Receive Date: 20110427
  Receipt Date: 20121205
  Transmission Date: 20130627
  Serious: Yes (Life-Threatening, Hospitalization, Other)
  Sender: FDA-Public Use
  Company Number: US-ASTRAZENECA-2011SE22509

PATIENT
  Age: 45 Year
  Sex: Male

DRUGS (1)
  1. NEXIUM [Suspect]
     Route: 048

REACTIONS (7)
  - Coma [Unknown]
  - Colonic obstruction [Unknown]
  - Septic shock [Unknown]
  - Intestinal perforation [Unknown]
  - Large intestine perforation [Unknown]
  - Malaise [Unknown]
  - Communication disorder [Unknown]
